FAERS Safety Report 7125619-9 (Version None)
Quarter: 2010Q4

REPORT INFORMATION
  Report Type: 
  Country: None (occurrence: None)
  Receive Date: 20101129
  Receipt Date: 20101122
  Transmission Date: 20110411
  Serious: Yes (Hospitalization)
  Sender: FDA-Public Use
  Company Number: US-JNJFOC-20101104467

PATIENT
  Age: 59 Year
  Sex: Female
  Weight: 91 kg

DRUGS (7)
  1. DOXIL [Suspect]
     Indication: OVARIAN EPITHELIAL CANCER
     Dosage: 46 CYCLES
     Route: 042
  2. BORTEZOMIB [Suspect]
     Indication: OVARIAN EPITHELIAL CANCER
     Dosage: ON DAY 1 OF 21 DAY CYCLE (1 MG, MAX 6 CYCLES)
     Route: 033
  3. CARBOPLATIN [Suspect]
     Indication: OVARIAN EPITHELIAL CANCER
     Dosage: ON DAY 1 OF 21 DAY CYCLE (AUC = 5, MAX 6 CYCLES)
     Route: 033
  4. CARVEDILOL [Concomitant]
     Indication: HYPERTENSION
     Route: 065
  5. CARVEDILOL [Concomitant]
     Route: 065
  6. ENALAPRIL MALEATE [Concomitant]
     Indication: HYPERTENSION
     Route: 065
  7. ENALAPRIL MALEATE [Concomitant]
     Route: 065

REACTIONS (4)
  - ABDOMINAL PAIN [None]
  - DIARRHOEA [None]
  - GASTRIC FISTULA [None]
  - NAUSEA [None]
